FAERS Safety Report 9997898 (Version 1)
Quarter: 2014Q1

REPORT INFORMATION
  Report Type: Spontaneous
  Country: US (occurrence: None)
  Receive Date: 20140304
  Receipt Date: 20140304
  Transmission Date: 20141002
  Serious: Yes (Hospitalization, Other)
  Sender: FDA-Public Use
  Company Number: RB-51389-2013

PATIENT
  Sex: Female
  Weight: 3.04 kg

DRUGS (2)
  1. BUPRENORPHINE [Suspect]
     Indication: DRUG DEPENDENCE
     Route: 064
     Dates: start: 20120612
  2. SUBOXONE [Suspect]
     Indication: DRUG DEPENDENCE
     Dosage: VARIOUS DOSES DAILY TRANSPLACENTAL)
     Route: 064
     Dates: start: 201205, end: 20120611

REACTIONS (2)
  - Foetal exposure during pregnancy [None]
  - Drug withdrawal syndrome neonatal [None]
